FAERS Safety Report 6681187-7 (Version None)
Quarter: 2010Q2

REPORT INFORMATION
  Report Type: 
  Country: None (occurrence: None)
  Receive Date: 20100414
  Receipt Date: 20100406
  Transmission Date: 20101027
  Serious: Yes (Hospitalization)
  Sender: FDA-Public Use
  Company Number: US-ELI_LILLY_AND_COMPANY-US201004001578

PATIENT
  Sex: Male

DRUGS (20)
  1. HUMALOG MIX 50/50 [Suspect]
     Indication: DIABETES MELLITUS
     Dosage: 30 U, 2/D
     Dates: start: 20100101
  2. HUMULIN 50/50 [Suspect]
     Indication: DIABETES MELLITUS
     Dosage: 30 U, 2/D
     Dates: start: 20050101, end: 20100101
  3. SANCTURA [Concomitant]
     Dosage: 60 MG, DAILY (1/D)
  4. ATENOLOL [Concomitant]
     Dosage: 100 MG, DAILY (1/D)
  5. BUPROPION [Concomitant]
     Dosage: 300 MG, DAILY (1/D)
  6. PAROXETINE HCL [Concomitant]
     Dosage: 20 MG, 2/D
  7. ALOPURINOL [Concomitant]
     Dosage: 300 MG, DAILY (1/D)
  8. DICYCLOMINE [Concomitant]
     Dosage: 20 MG, 2/D
  9. CILOSTAZOL [Concomitant]
     Dosage: 100 MG, DAILY (1/D)
  10. PRIMIDONE [Concomitant]
     Dosage: 250 MG, 2/D
  11. SINGULAIR [Concomitant]
     Dosage: 10 MG, DAILY (1/D)
  12. UROXATRAL [Concomitant]
     Dosage: 10 MG, DAILY (1/D)
  13. LIPITOR [Concomitant]
     Dosage: 10 MG, DAILY (1/D)
  14. FEXOFENADINE [Concomitant]
     Dosage: 60 MG, DAILY (1/D)
  15. ENALAPRIL MALEATE [Concomitant]
     Dosage: 5 MG, DAILY (1/D)
  16. MULTI-VITAMIN [Concomitant]
     Dosage: UNK, DAILY (1/D)
  17. ASPIRIN [Concomitant]
     Dosage: 81 MG, DAILY (1/D)
  18. CALCIUM WITH VITAMIN D [Concomitant]
     Dosage: 500 MG, DAILY (1/D)
  19. ALENDRONATE SODIUM [Concomitant]
     Dosage: 70 MG, WEEKLY (1/W)
  20. ADVAIR DISKUS 100/50 [Concomitant]
     Dosage: UNK, 2/D

REACTIONS (5)
  - BLOOD GLUCOSE INCREASED [None]
  - COLITIS [None]
  - DRUG INEFFECTIVE [None]
  - HAEMATOCHEZIA [None]
  - POLYP COLORECTAL [None]
